FAERS Safety Report 24087853 (Version 4)
Quarter: 2024Q3

REPORT INFORMATION
  Report Type: Spontaneous
  Country: BE (occurrence: BE)
  Receive Date: 20240715
  Receipt Date: 20240816
  Transmission Date: 20241017
  Serious: Yes (Other)
  Sender: SANOFI AVENTIS
  Company Number: None

PATIENT
  Sex: Male

DRUGS (7)
  1. ZOLPIDEM TARTRATE [Suspect]
     Active Substance: ZOLPIDEM TARTRATE
     Dosage: UNK
     Route: 065
  2. PANTOPRAZOLE [Suspect]
     Active Substance: PANTOPRAZOLE
     Dosage: UNK
     Route: 065
  3. IBUPROFEN [Suspect]
     Active Substance: IBUPROFEN
     Dosage: UNK
     Route: 065
  4. MOTILIUM [Suspect]
     Active Substance: DOMPERIDONE
     Dosage: UNK
     Route: 065
  5. NITROFURANTOIN [Suspect]
     Active Substance: NITROFURANTOIN
     Dosage: UNK
  6. DOMINAL (PROTHIPENDYL HYDROCHLORIDE) [Suspect]
     Active Substance: PROTHIPENDYL HYDROCHLORIDE
     Dosage: UNK
     Route: 065
  7. ZOLPIDEM [Suspect]
     Active Substance: ZOLPIDEM TARTRATE

REACTIONS (2)
  - Pharmaceutical nomadism [Unknown]
  - Prescription form tampering [Unknown]
